FAERS Safety Report 15899754 (Version 4)
Quarter: 2019Q2

REPORT INFORMATION
  Report Type: Spontaneous
  Country: US (occurrence: US)
  Receive Date: 20190201
  Receipt Date: 20190513
  Transmission Date: 20190711
  Serious: Yes (Other)
  Sender: FDA-Public Use
  Company Number: US-PFIZER INC-2019048771

PATIENT
  Age: 56 Year
  Sex: Female
  Weight: 110.66 kg

DRUGS (19)
  1. NEOSAR [Concomitant]
     Active Substance: CYCLOPHOSPHAMIDE
     Dosage: UNK (4 CYCLES)
  2. ADRIAMYCIN [Concomitant]
     Active Substance: DOXORUBICIN HYDROCHLORIDE
     Dosage: UNK (4 CYCLES)
  3. ARIMIDEX [Concomitant]
     Active Substance: ANASTROZOLE
     Dosage: UNK
     Dates: start: 201605, end: 20160823
  4. DOCETAXEL. [Suspect]
     Active Substance: DOCETAXEL
     Indication: BREAST CANCER FEMALE
     Dosage: UNK, EVERY 3 WEEKS (4 CYCLES)
     Dates: start: 20151216, end: 20160217
  5. RESTORIL [Concomitant]
     Active Substance: TEMAZEPAM
     Dosage: UNK
     Dates: start: 20130101
  6. LOVENOX [Concomitant]
     Active Substance: ENOXAPARIN SODIUM
     Dosage: UNK
     Dates: start: 20130101
  7. AROMASIN [Concomitant]
     Active Substance: EXEMESTANE
     Dosage: UNK
     Dates: start: 20130101
  8. DOCETAXEL. [Suspect]
     Active Substance: DOCETAXEL
     Dosage: UNK, EVERY 3 WEEKS (4 CYCLES)
     Dates: start: 20151217, end: 20160217
  9. DOCEFREZ [Suspect]
     Active Substance: DOCETAXEL ANHYDROUS
     Dosage: UNK, EVERY 3 WEEKS (4 CYCLES)
     Dates: start: 20151217, end: 20160217
  10. AROMASIN [Concomitant]
     Active Substance: EXEMESTANE
     Dosage: UNK
     Dates: start: 20160824
  11. TAXOTERE [Suspect]
     Active Substance: DOCETAXEL
     Indication: BREAST CANCER FEMALE
     Dosage: UNK, EVERY 3 WEEKS (4 CYCLES)
     Dates: start: 20151216, end: 20160217
  12. PROZAC [Concomitant]
     Active Substance: FLUOXETINE HYDROCHLORIDE
     Dosage: UNK
     Dates: start: 20130101
  13. TAXOTERE [Suspect]
     Active Substance: DOCETAXEL
     Dosage: UNK, EVERY 3 WEEKS (4 CYCLES)
     Dates: start: 20151217, end: 20160217
  14. DOXIL [PEGYLATED LIPOSOMAL DOXORUBICIN HYDROCHLORIDE] [Concomitant]
     Dosage: UNK
  15. LISINOPRIL. [Concomitant]
     Active Substance: LISINOPRIL
     Dosage: UNK
     Dates: start: 2010
  16. ARIMIDEX [Concomitant]
     Active Substance: ANASTROZOLE
     Dosage: UNK
     Dates: start: 20130101
  17. DOCETAXEL. [Suspect]
     Active Substance: DOCETAXEL
     Indication: BREAST CANCER FEMALE
     Dosage: UNK, EVERY 3 WEEKS (4 CYCLES)
     Dates: start: 20151216, end: 20160217
  18. DOCETAXEL. [Suspect]
     Active Substance: DOCETAXEL
     Dosage: UNK, EVERY 3 WEEKS (4 CYCLES)
     Dates: start: 20151217, end: 20160217
  19. DOCEFREZ [Suspect]
     Active Substance: DOCETAXEL ANHYDROUS
     Indication: BREAST CANCER FEMALE
     Dosage: UNK, EVERY 3 WEEKS (4 CYCLES)
     Dates: start: 20151216, end: 20160217

REACTIONS (6)
  - Hair disorder [Not Recovered/Not Resolved]
  - Alopecia [Not Recovered/Not Resolved]
  - Hair texture abnormal [Not Recovered/Not Resolved]
  - Madarosis [Not Recovered/Not Resolved]
  - Major depression [Unknown]
  - Hair colour changes [Not Recovered/Not Resolved]

NARRATIVE: CASE EVENT DATE: 2015
